FAERS Safety Report 17534642 (Version 5)
Quarter: 2021Q1

REPORT INFORMATION
  Report Type: Spontaneous
  Country: US (occurrence: US)
  Receive Date: 20200312
  Receipt Date: 20210317
  Transmission Date: 20210419
  Serious: Yes (Other)
  Sender: FDA-Public Use
  Company Number: US-TEVA-2020-US-1198331

PATIENT
  Age: 78 Year
  Sex: Female

DRUGS (1)
  1. PROAIR HFA [Suspect]
     Active Substance: ALBUTEROL SULFATE
     Route: 065

REACTIONS (8)
  - Cerebral disorder [Unknown]
  - Drug hypersensitivity [Unknown]
  - Tooth injury [Unknown]
  - Fall [Unknown]
  - Toothache [Unknown]
  - Malaise [Unknown]
  - Knee operation [Unknown]
  - Mental impairment [Unknown]

NARRATIVE: CASE EVENT DATE: 20200309
